FAERS Safety Report 8024350-5 (Version None)
Quarter: 2011Q4

REPORT INFORMATION
  Report Type: 
  Country: None (occurrence: None)
  Receive Date: 20111130
  Receipt Date: 20110822
  Transmission Date: 20120403
  Serious: Yes (Hospitalization)
  Sender: FDA-Public Use
  Company Number: 333957

PATIENT
  Age: 53 Year
  Sex: Female
  Weight: 90.7 kg

DRUGS (16)
  1. NEXIUM /01479302/ (3SOMPRAZOLE MAGNESIUM) [Concomitant]
  2. ONGLYZA [Concomitant]
  3. TEMAZEPAM [Concomitant]
  4. LEVEMIR [Suspect]
     Indication: TYPE 2 DIABETES MELLITUS
     Dosage: 10 IN AM 55 IN PM, SUBCUTANEOUS
     Route: 058
  5. FUROSEMIDE [Concomitant]
  6. NOVOLOG [Suspect]
     Indication: TYPE 2 DIABETES MELLITUS
     Dosage: 20U, TID (BEFORE EACH MEAL), SUBCUTANEOUS
     Route: 058
  7. CRESTOR (CRESTOR) [Concomitant]
  8. VICODIN [Concomitant]
  9. ALPRAZOLAM [Concomitant]
  10. GABAPENTIN [Concomitant]
  11. LISINOPRIL [Concomitant]
  12. PROMETHAZINE [Concomitant]
  13. LEVOTHYROXINE SODIUM [Concomitant]
  14. ATENOLOL [Concomitant]
  15. HYDROCODONE BITARTRATE [Concomitant]
  16. NORTRIPTYLINE HCL [Concomitant]

REACTIONS (5)
  - HYPOGLYCAEMIC UNCONSCIOUSNESS [None]
  - INJECTION SITE REACTION [None]
  - BLOOD GLUCOSE FLUCTUATION [None]
  - INJECTION SITE PAIN [None]
  - VOMITING [None]
